FAERS Safety Report 13377550 (Version 2)
Quarter: 2017Q2

REPORT INFORMATION
  Report Type: Spontaneous
  Country: AE (occurrence: AE)
  Receive Date: 20170328
  Receipt Date: 20170503
  Transmission Date: 20170830
  Serious: Yes (Hospitalization)
  Sender: FDA-Public Use
  Company Number: AE-JNJFOC-20170322624

PATIENT
  Age: 41 Year
  Sex: Male
  Weight: 108 kg

DRUGS (1)
  1. REMICADE [Suspect]
     Active Substance: INFLIXIMAB
     Indication: ANKYLOSING SPONDYLITIS
     Route: 042
     Dates: start: 20120604, end: 20161102

REACTIONS (1)
  - Pancreatitis acute [Recovered/Resolved]

NARRATIVE: CASE EVENT DATE: 20161110
